FAERS Safety Report 4520195-9 (Version None)
Quarter: 2004Q4

REPORT INFORMATION
  Report Type: 
  Country: None (occurrence: None)
  Receive Date: 20041027
  Receipt Date: 20040816
  Transmission Date: 20050328
  Serious: Yes (Death)
  Sender: FDA-Public Use
  Company Number: 04P-163-0270738-00

PATIENT
  Age: 91 Year
  Sex: Female

DRUGS (7)
  1. SYNTHROID [Suspect]
     Indication: THYROID DISORDER
     Dates: end: 20040801
  2. NITROFURANTOIN [Concomitant]
  3. LOTREL [Concomitant]
  4. DONEPEZIL HCL [Concomitant]
  5. ATORVASTATIN [Concomitant]
  6. LATANAOPROST [Concomitant]
  7. LISINOPRIL [Concomitant]

REACTIONS (1)
  - DEATH [None]
